APPROVED DRUG PRODUCT: POTASSIUM CITRATE
Active Ingredient: POTASSIUM CITRATE
Strength: 5MEQ
Dosage Form/Route: TABLET, EXTENDED RELEASE;ORAL
Application: A077440 | Product #001 | TE Code: AB
Applicant: RISING PHARMA HOLDINGS INC
Approved: Jun 9, 2006 | RLD: No | RS: No | Type: RX